FAERS Safety Report 23482792 (Version 1)
Quarter: 2024Q1

REPORT INFORMATION
  Report Type: Spontaneous
  Country: ES (occurrence: ES)
  Receive Date: 20240205
  Receipt Date: 20240205
  Transmission Date: 20240410
  Serious: Yes (Hospitalization, Other)
  Sender: FDA-Public Use
  Company Number: None

PATIENT
  Age: 51 Year
  Sex: Female
  Weight: 48 kg

DRUGS (4)
  1. ACETAMINOPHEN [Suspect]
     Active Substance: ACETAMINOPHEN
     Indication: Pain
     Dosage: 1 GRAM EVERY 8 HOURS INTRAVENOUSLY UNTIL JANUARY 5, WHICH IS THEN TRANSFERRED ORALLY UNTIL JANUARY 8
     Route: 042
     Dates: start: 20240101, end: 20240108
  2. ANIDULAFUNGIN [Suspect]
     Active Substance: ANIDULAFUNGIN
     Indication: Candida test positive
     Dosage: 100MG IN 130ML OF SOL. NACL 0.9% MIV 1 EVERY 24 HOURS?INTRAVENOUS
     Dates: start: 20240104, end: 20240108
  3. SULFAMETHOXAZOLE\TRIMETHOPRIM [Suspect]
     Active Substance: SULFAMETHOXAZOLE\TRIMETHOPRIM
     Indication: Antifungal prophylaxis
     Dosage: 400/80 MG EVERY 24 HOURS INTRAVENOUSLY, AT SOME POINT IT IS CHANGED TO ORAL ROUTE AND ON JANUARY 8 I
     Dates: start: 20231230
  4. TACROLIMUS [Suspect]
     Active Substance: TACROLIMUS
     Indication: Product used for unknown indication
     Dosage: ORAL
     Dates: start: 20231229

REACTIONS (2)
  - Blood alkaline phosphatase increased [Recovering/Resolving]
  - Hypertransaminasaemia [Recovering/Resolving]

NARRATIVE: CASE EVENT DATE: 20240105
